FAERS Safety Report 22312609 (Version 4)
Quarter: 2023Q2

REPORT INFORMATION
  Report Type: Report from Study
  Country: US (occurrence: US)
  Receive Date: 20230512
  Receipt Date: 20230520
  Transmission Date: 20230722
  Serious: No
  Sender: FDA-Public Use
  Company Number: US-002147023-NVSC2023US108169

PATIENT
  Sex: Female
  Weight: 62.585 kg

DRUGS (1)
  1. COSENTYX [Suspect]
     Active Substance: SECUKINUMAB
     Indication: Psoriasis
     Dosage: 300 MILLIGRAM PER MILLILITRE, QMO
     Route: 058
     Dates: start: 20230411

REACTIONS (1)
  - Hypersensitivity [Unknown]
